FAERS Safety Report 6154618-9 (Version None)
Quarter: 2009Q2

REPORT INFORMATION
  Report Type: 
  Country: None (occurrence: None)
  Receive Date: 20090414
  Receipt Date: 20090406
  Transmission Date: 20091009
  Serious: Yes (Other)
  Sender: FDA-Public Use
  Company Number: JP-ELI_LILLY_AND_COMPANY-JP200903002163

PATIENT
  Sex: Male
  Weight: 24 kg

DRUGS (1)
  1. HUMATROPE [Suspect]
     Indication: GROWTH HORMONE DEFICIENCY
     Dosage: 0.5 MG, DAILY (1/D)
     Route: 058
     Dates: start: 20030722, end: 20071113

REACTIONS (1)
  - BRAIN NEOPLASM [None]
